FAERS Safety Report 12687618 (Version 1)
Quarter: 2016Q3

REPORT INFORMATION
  Report Type: Spontaneous
  Country: US (occurrence: US)
  Receive Date: 20160825
  Receipt Date: 20160825
  Transmission Date: 20161109
  Serious: Yes (Other)
  Sender: FDA-Public Use
  Company Number: US-MYLANLABS-2016M1035299

PATIENT

DRUGS (6)
  1. ALPRAZOLAM. [Suspect]
     Active Substance: ALPRAZOLAM
     Indication: AGITATION
     Dosage: AND AS NEEDED EVERY 8 HOURS
     Route: 048
  2. FAMOTIDINE. [Suspect]
     Active Substance: FAMOTIDINE
     Indication: GASTROOESOPHAGEAL REFLUX DISEASE
     Dosage: 20 MG, BID
     Route: 048
  3. MONTELUKAST [Suspect]
     Active Substance: MONTELUKAST SODIUM
     Indication: ASTHMA
     Dosage: 10 MG, HS
     Route: 048
  4. ZOLPIDEM [Suspect]
     Active Substance: ZOLPIDEM\ZOLPIDEM TARTRATE
     Indication: INSOMNIA
     Dosage: AT BEDTIME
     Route: 048
  5. DONEPEZIL. [Suspect]
     Active Substance: DONEPEZIL
     Indication: DEMENTIA
     Dosage: 10 MG, HS
     Route: 048
  6. MEMANTINE. [Suspect]
     Active Substance: MEMANTINE
     Indication: DEMENTIA
     Dosage: 10 MG, BID
     Route: 048

REACTIONS (9)
  - Fall [Recovered/Resolved]
  - Chronic kidney disease [Recovering/Resolving]
  - Poverty of speech [Recovering/Resolving]
  - Aggression [Recovering/Resolving]
  - Somnolence [Recovering/Resolving]
  - Confusional state [Recovering/Resolving]
  - Decreased appetite [Recovered/Resolved]
  - Drug administered to patient of inappropriate age [Recovering/Resolving]
  - Weight decreased [Recovering/Resolving]
